FAERS Safety Report 21333978 (Version 1)
Quarter: 2022Q3

REPORT INFORMATION
  Report Type: Spontaneous
  Country: US (occurrence: US)
  Receive Date: 20220914
  Receipt Date: 20220914
  Transmission Date: 20221027
  Serious: No
  Sender: FDA-Public Use
  Company Number: US-PFIZER INC-PV202200062830

PATIENT
  Sex: Female

DRUGS (1)
  1. ATORVASTATIN CALCIUM [Suspect]
     Active Substance: ATORVASTATIN CALCIUM
     Dosage: 20 MG, 1X/DAY (20MG TABLES 30 DAY WITH 30 QTY)

REACTIONS (9)
  - Cardiac disorder [Unknown]
  - Muscle disorder [Unknown]
  - Illness [Unknown]
  - Rash [Unknown]
  - Urticaria [Unknown]
  - Muscle spasms [Unknown]
  - Alopecia [Unknown]
  - Somnolence [Unknown]
  - Muscle spasms [Unknown]
